FAERS Safety Report 12209932 (Version 1)
Quarter: 2016Q1

REPORT INFORMATION
  Report Type: Spontaneous
  Country: ES (occurrence: ES)
  Receive Date: 20160325
  Receipt Date: 20160325
  Transmission Date: 20160526
  Serious: Yes (Hospitalization, Other)
  Sender: FDA-Public Use
  Company Number: ES-ACCORD-038867

PATIENT
  Age: 84 Year
  Sex: Male

DRUGS (6)
  1. DONEPEZIL/DONEPEZIL HYDROCHLORIDE [Interacting]
     Active Substance: DONEPEZIL HYDROCHLORIDE
     Indication: PRODUCT USED FOR UNKNOWN INDICATION
  2. TAMSULOSIN/TAMSULOSIN HYDROCHLORIDE [Concomitant]
  3. QUETIAPINE [Suspect]
     Active Substance: QUETIAPINE
     Indication: PRODUCT USED FOR UNKNOWN INDICATION
  4. CLONAZEPAM. [Concomitant]
     Active Substance: CLONAZEPAM
  5. TIOTROPIUM [Concomitant]
     Active Substance: TIOTROPIUM
     Dosage: 1 INH/DAY
  6. OLANZAPINE. [Interacting]
     Active Substance: OLANZAPINE
     Indication: PRODUCT USED FOR UNKNOWN INDICATION
     Dosage: PRESCRIBED AGO 8 WEEKS

REACTIONS (4)
  - Azotaemia [None]
  - Atelectasis [None]
  - Neuroleptic malignant syndrome [Recovering/Resolving]
  - Drug interaction [Unknown]
